FAERS Safety Report 6094039-0 (Version None)
Quarter: 2009Q1

REPORT INFORMATION
  Report Type: 
  Country: None (occurrence: None)
  Receive Date: 20090226
  Receipt Date: 20090218
  Transmission Date: 20090719
  Serious: Yes (Hospitalization)
  Sender: FDA-Public Use
  Company Number: US-GILEAD-2009-0019838

PATIENT
  Sex: Female
  Weight: 57.658 kg

DRUGS (19)
  1. LETAIRIS [Suspect]
     Indication: PULMONARY ARTERIAL HYPERTENSION
     Route: 048
     Dates: start: 20080418
  2. COUMADIN [Concomitant]
  3. ASPIRIN [Concomitant]
     Route: 048
  4. REVATIO [Concomitant]
  5. OXYGEN [Concomitant]
  6. LISINOPRIL [Concomitant]
  7. LASIX [Concomitant]
  8. ADVAIR HFA [Concomitant]
  9. SINGULAIR [Concomitant]
  10. SYNTHROID [Concomitant]
  11. FLUTICASONE PROPIONATE [Concomitant]
  12. PRILOSEC [Concomitant]
  13. PREDNISONE TAB [Concomitant]
  14. TYLENOL [Concomitant]
  15. CENTRUM [Concomitant]
  16. COENZYME Q10 [Concomitant]
  17. IRON [Concomitant]
  18. ASCORBIC ACID [Concomitant]
  19. FLAXSEED [Concomitant]

REACTIONS (2)
  - ANAEMIA [None]
  - HAEMORRHAGE [None]
